FAERS Safety Report 6969514-4 (Version None)
Quarter: 2010Q3

REPORT INFORMATION
  Report Type: 
  Country: None (occurrence: None)
  Receive Date: 20100907
  Receipt Date: 20100907
  Transmission Date: 20110219
  Serious: Yes (Other)
  Sender: FDA-Public Use
  Company Number: None

PATIENT
  Age: 7 Year
  Sex: Male
  Weight: 29.9374 kg

DRUGS (1)
  1. SINGULAIR [Suspect]
     Indication: ASTHMA
     Dosage: 1 PILL ONCE A DAY PO
     Route: 048
     Dates: start: 20100420, end: 20100822

REACTIONS (7)
  - AFFECTIVE DISORDER [None]
  - AGGRESSION [None]
  - ANGER [None]
  - ANXIETY [None]
  - COMPULSIONS [None]
  - DEPRESSION [None]
  - PERSONALITY CHANGE [None]
